FAERS Safety Report 4863751-0 (Version None)
Quarter: 2005Q4

REPORT INFORMATION
  Report Type: 
  Country: None (occurrence: None)
  Receive Date: 20051222
  Receipt Date: 20050726
  Transmission Date: 20060501
  Serious: No
  Sender: FDA-Public Use
  Company Number: US-GLAXOSMITHKLINE-A0567721A

PATIENT
  Age: 82 Year
  Sex: Female

DRUGS (3)
  1. FLONASE [Suspect]
     Dosage: 1SPR PER DAY
     Route: 045
  2. ACTIFED [Concomitant]
  3. ALPRAZOLAM [Concomitant]

REACTIONS (5)
  - AGEUSIA [None]
  - DYSPHONIA [None]
  - INSOMNIA [None]
  - NASAL ULCER [None]
  - PHARYNGOLARYNGEAL PAIN [None]
